FAERS Safety Report 16905731 (Version 1)
Quarter: 2019Q4

REPORT INFORMATION
  Report Type: Spontaneous
  Country: US (occurrence: US)
  Receive Date: 20191010
  Receipt Date: 20191010
  Transmission Date: 20200122
  Serious: No
  Sender: FDA-Public Use
  Company Number: US-ELI_LILLY_AND_COMPANY-US201910005377

PATIENT
  Sex: Female

DRUGS (1)
  1. GEMZAR [Suspect]
     Active Substance: GEMCITABINE HYDROCHLORIDE
     Indication: LUNG ADENOCARCINOMA
     Dosage: UNK UNK, UNKNOWN
     Route: 065
     Dates: start: 20190908

REACTIONS (8)
  - Skin swelling [Unknown]
  - Fatigue [Unknown]
  - Sleep disorder [Unknown]
  - Visual impairment [Unknown]
  - Acne [Unknown]
  - Eye irritation [Unknown]
  - Constipation [Unknown]
  - Alopecia [Unknown]
